FAERS Safety Report 9387310 (Version 5)
Quarter: 2013Q4

REPORT INFORMATION
  Report Type: Spontaneous
  Country: US (occurrence: US)
  Receive Date: 20130708
  Receipt Date: 20131213
  Transmission Date: 20140711
  Serious: Yes (Hospitalization, Congenital Anomaly, Other)
  Sender: FDA-Public Use
  Company Number: US-JNJFOC-20130700095

PATIENT
  Age: 4 Year
  Sex: Male

DRUGS (12)
  1. TOPAMAX [Suspect]
     Indication: CONVULSION
     Route: 064
     Dates: start: 200704, end: 200707
  2. TOPROL [Suspect]
     Indication: PRODUCT USED FOR UNKNOWN INDICATION
     Route: 064
  3. DEMEROL [Suspect]
     Indication: PRODUCT USED FOR UNKNOWN INDICATION
     Route: 064
  4. VICODIN [Suspect]
     Indication: PRODUCT USED FOR UNKNOWN INDICATION
     Route: 064
  5. MEPERIDINE [Suspect]
     Indication: FOETAL EXPOSURE DURING PREGNANCY
     Route: 064
  6. ALPRAZOLAM [Suspect]
     Indication: FOETAL EXPOSURE DURING PREGNANCY
     Route: 064
  7. NEXIUM [Suspect]
     Indication: FOETAL EXPOSURE DURING PREGNANCY
     Route: 064
  8. METOPROLOL [Suspect]
     Indication: FOETAL EXPOSURE DURING PREGNANCY
     Route: 064
  9. HYDROCODONE/APAP [Suspect]
     Indication: FOETAL EXPOSURE DURING PREGNANCY
     Route: 064
  10. LISINOPRIL/HCTZ [Suspect]
     Indication: FOETAL EXPOSURE DURING PREGNANCY
     Route: 064
  11. PROMETHAZINE [Suspect]
     Indication: FOETAL EXPOSURE DURING PREGNANCY
     Route: 064
  12. PRENATAL VITAMINS [Concomitant]
     Indication: PRODUCT USED FOR UNKNOWN INDICATION
     Route: 065

REACTIONS (14)
  - Pulmonary artery atresia [Not Recovered/Not Resolved]
  - Congenital tricuspid valve atresia [Not Recovered/Not Resolved]
  - Foetal exposure during pregnancy [Recovered/Resolved]
  - Cardio-respiratory arrest [Unknown]
  - Left ventricular dysfunction [Not Recovered/Not Resolved]
  - Failure to thrive [Unknown]
  - Thrombosis [Recovered/Resolved]
  - Ventricular hypoplasia [Not Recovered/Not Resolved]
  - Patent ductus arteriosus [Recovered/Resolved]
  - Atrial septal defect [Unknown]
  - Congenital tricuspid valve stenosis [Unknown]
  - Sepsis [Unknown]
  - Jaundice cholestatic [Unknown]
  - Hypoxia [Unknown]
